FAERS Safety Report 17482571 (Version 1)
Quarter: 2020Q1

REPORT INFORMATION
  Report Type: Spontaneous
  Country: GB (occurrence: GB)
  Receive Date: 20200302
  Receipt Date: 20200302
  Transmission Date: 20200409
  Serious: Yes (Other)
  Sender: FDA-Public Use
  Company Number: GB-PFIZER INC-2020085629

PATIENT

DRUGS (2)
  1. SERTRALINE HCL [Suspect]
     Active Substance: SERTRALINE HYDROCHLORIDE
     Indication: DEPRESSION
     Dosage: 200 MG, 1X/DAY
     Route: 064
     Dates: start: 20181201
  2. QUETIAPINE. [Suspect]
     Active Substance: QUETIAPINE
     Indication: DEPRESSION
     Dosage: 200 MG, 1X/DAY
     Route: 064
     Dates: start: 20181201, end: 20200204

REACTIONS (2)
  - Foetal exposure during pregnancy [Unknown]
  - Klinefelter^s syndrome [Unknown]

NARRATIVE: CASE EVENT DATE: 20200204
